FAERS Safety Report 7130987-8 (Version None)
Quarter: 2010Q4

REPORT INFORMATION
  Report Type: 
  Country: None (occurrence: None)
  Receive Date: 20101201
  Receipt Date: 20101123
  Transmission Date: 20110411
  Serious: Yes (Hospitalization)
  Sender: FDA-Public Use
  Company Number: A0896795A

PATIENT
  Age: 53 Year
  Sex: Male

DRUGS (8)
  1. ARIXTRA [Suspect]
  2. SOLIRIS [Suspect]
     Route: 042
     Dates: start: 20081101
  3. ASPIRIN [Suspect]
  4. ESOMEPRAZOLE [Concomitant]
  5. PREDNISONE [Concomitant]
  6. ZOLOFT [Concomitant]
  7. NADOLOL [Concomitant]
  8. GABAPENTIN [Concomitant]

REACTIONS (2)
  - DIVERTICULITIS [None]
  - DIVERTICULITIS INTESTINAL HAEMORRHAGIC [None]
